FAERS Safety Report 6572148-7 (Version None)
Quarter: 2010Q1

REPORT INFORMATION
  Report Type: 
  Country: None (occurrence: None)
  Receive Date: 20100205
  Receipt Date: 20100204
  Transmission Date: 20100710
  Serious: Yes (Other)
  Sender: FDA-Public Use
  Company Number: A0837410A

PATIENT
  Age: 59 Year
  Sex: Male
  Weight: 81.8 kg

DRUGS (7)
  1. CARVEDILOL [Suspect]
     Dosage: 12.5MGK PER DAY
     Route: 048
     Dates: start: 20080101, end: 20080101
  2. ZETIA [Concomitant]
  3. LIPITOR [Concomitant]
  4. ALTACE [Concomitant]
  5. TRIAMTERENE [Concomitant]
  6. MAGNESIUM [Concomitant]
  7. ASPIRIN [Concomitant]

REACTIONS (2)
  - DIZZINESS [None]
  - VOMITING [None]
